FAERS Safety Report 7516733-4 (Version None)
Quarter: 2011Q2

REPORT INFORMATION
  Report Type: 
  Country: None (occurrence: None)
  Receive Date: 20110601
  Receipt Date: 20110526
  Transmission Date: 20111010
  Serious: Yes (Death, Other)
  Sender: FDA-Public Use
  Company Number: GB-ABBOTT-11P-167-0724977-00

PATIENT
  Sex: Female
  Weight: 82 kg

DRUGS (7)
  1. MEZAVANTYXL [Concomitant]
     Indication: CROHN'S DISEASE
     Route: 048
  2. PREDNISOLONE [Concomitant]
     Indication: CROHN'S DISEASE
     Route: 048
  3. HUMIRA [Suspect]
     Route: 058
     Dates: start: 20101108
  4. HUMIRA [Suspect]
     Indication: CROHN'S DISEASE
     Route: 058
     Dates: start: 20101011, end: 20101108
  5. MEBEVRINE [Concomitant]
     Indication: MUSCLE SPASMS
     Route: 048
  6. MEBEVRINE [Concomitant]
     Indication: PROPHYLAXIS
  7. HUMIRA [Suspect]
     Route: 058
     Dates: start: 20101001

REACTIONS (4)
  - SYSTEMIC INFLAMMATORY RESPONSE SYNDROME [None]
  - CROHN'S DISEASE [None]
  - GASTROINTESTINAL NECROSIS [None]
  - COLITIS [None]
